FAERS Safety Report 17525878 (Version 1)
Quarter: 2020Q1

REPORT INFORMATION
  Report Type: Spontaneous
  Country: US (occurrence: US)
  Receive Date: 20200310
  Receipt Date: 20200310
  Transmission Date: 20200409
  Serious: Yes (Hospitalization, Other)
  Sender: FDA-Public Use
  Company Number: US-009507513-2003USA001386

PATIENT
  Age: 52 Year
  Sex: Female

DRUGS (4)
  1. CANAGLIFLOZIN [Suspect]
     Active Substance: CANAGLIFLOZIN
     Dosage: FOR THE PAST 2 YEARS
  2. COCAINE [Suspect]
     Active Substance: COCAINE
     Dosage: NFREQUENT OCCURRENCE AFTER 4 YEARS OF BEING COCAINE FREE
  3. GLIPIZIDE. [Concomitant]
     Active Substance: GLIPIZIDE
     Dosage: FOR THE PAST 2 YEARS
  4. PRINIVIL [Suspect]
     Active Substance: LISINOPRIL
     Dosage: FOR THE PAST 2 YEARS
     Route: 048

REACTIONS (1)
  - Acute kidney injury [Recovering/Resolving]
